FAERS Safety Report 6407245-X (Version None)
Quarter: 2009Q4

REPORT INFORMATION
  Report Type: 
  Country: None (occurrence: None)
  Receive Date: 20091020
  Receipt Date: 20091012
  Transmission Date: 20100525
  Serious: Yes (Hospitalization)
  Sender: FDA-Public Use
  Company Number: US-ABBOTT-09P-163-0602159-00

PATIENT
  Sex: Male

DRUGS (6)
  1. HUMIRA [Suspect]
     Indication: CROHN'S DISEASE
     Route: 058
     Dates: start: 20090926, end: 20090926
  2. HUMIRA [Suspect]
     Dosage: PLAN TO BE FOLLOWED BY 40 MG EVERY OTHER WEEK.
     Route: 058
     Dates: start: 20091010, end: 20091010
  3. FLAGYL [Concomitant]
     Indication: CROHN'S DISEASE
     Dosage: DOSE UNKNOWN
  4. MERCAPTOPURINE [Concomitant]
     Indication: CROHN'S DISEASE
  5. PREDNISONE [Concomitant]
     Indication: CROHN'S DISEASE
     Dosage: TAPER
  6. CIPRO [Concomitant]
     Indication: CROHN'S DISEASE

REACTIONS (6)
  - ABDOMINAL PAIN [None]
  - CROHN'S DISEASE [None]
  - ENTERITIS INFECTIOUS [None]
  - GASTROINTESTINAL INFLAMMATION [None]
  - PYREXIA [None]
  - WHITE BLOOD CELL COUNT INCREASED [None]
